FAERS Safety Report 8836700 (Version 2)
Quarter: 2013Q1

REPORT INFORMATION
  Report Type: Spontaneous
  Country: US (occurrence: None)
  Receive Date: 20121010
  Receipt Date: 20121106
  Transmission Date: 20140127
  Serious: Yes (Hospitalization, Other)
  Sender: FDA-Public Use
  Company Number: 2012P1060096

PATIENT
  Age: 63 Year
  Sex: Female
  Weight: 64.49 kg

DRUGS (7)
  1. ONDANSETRON [Suspect]
     Indication: GASTROENTERITIS
     Route: 042
     Dates: start: 20120926, end: 20120926
  2. PROMETHAZINE [Suspect]
     Indication: GASTROENTERITIS
     Route: 042
     Dates: start: 20120926, end: 20120926
  3. ATIVAN [Suspect]
     Indication: PSYCHOTIC DISORDER
     Route: 042
     Dates: start: 20120926, end: 20120926
  4. BENADRYL [Suspect]
     Indication: PSYCHOTIC DISORDER
     Dosage: X2
     Route: 042
     Dates: start: 20120926, end: 20120926
  5. LIPITOR [Concomitant]
  6. TRAMADOL [Concomitant]
  7. METHOTREXATE [Concomitant]

REACTIONS (5)
  - Psychotic disorder [None]
  - Hallucination [None]
  - Aggression [None]
  - Drug ineffective [None]
  - Disorientation [None]
